FAERS Safety Report 12420097 (Version 2)
Quarter: 2016Q2

REPORT INFORMATION
  Report Type: Spontaneous
  Country: GB (occurrence: GB)
  Receive Date: 20160531
  Receipt Date: 20160601
  Transmission Date: 20160815
  Serious: Yes (Death, Life-Threatening, Hospitalization, Other)
  Sender: FDA-Public Use
  Company Number: GB-PFIZER INC-2016277876

PATIENT
  Age: 60 Year
  Sex: Male
  Weight: 200 kg

DRUGS (18)
  1. CITALOPRAM [Concomitant]
     Active Substance: CITALOPRAM HYDROBROMIDE
     Dosage: UNK
     Route: 065
  2. LEUPRORELIN [Concomitant]
     Active Substance: LEUPROLIDE ACETATE
     Dosage: UNK
     Route: 065
  3. MEROPENEM. [Concomitant]
     Active Substance: MEROPENEM
     Dosage: UNK
     Route: 065
  4. METHOTREXATE SODIUM. [Suspect]
     Active Substance: METHOTREXATE SODIUM
     Indication: PSORIATIC ARTHROPATHY
     Dosage: 20 MG, WEEKLY (1 IN 1 W)
     Route: 048
     Dates: end: 20160504
  5. AMIKACIN [Concomitant]
     Active Substance: AMIKACIN
     Dosage: UNK
     Route: 065
  6. LANTUS [Concomitant]
     Active Substance: INSULIN GLARGINE
     Dosage: UNK
     Route: 065
  7. PIPERACILLIN AND TAZOBACTAM [Concomitant]
     Active Substance: PIPERACILLIN SODIUM\TAZOBACTAM SODIUM
     Dosage: UNK
     Route: 065
  8. BENDROFLUMETHIAZIDE [Concomitant]
     Active Substance: BENDROFLUMETHIAZIDE
     Dosage: UNK
     Route: 065
  9. LIRAGLUTIDE [Concomitant]
     Active Substance: LIRAGLUTIDE
     Dosage: UNK
     Route: 065
  10. DOXAZOSIN [Concomitant]
     Active Substance: DOXAZOSIN\DOXAZOSIN MESYLATE
     Dosage: UNK
     Route: 065
  11. PREGABALIN. [Concomitant]
     Active Substance: PREGABALIN
     Dosage: UNK
     Route: 065
  12. FOLIC ACID. [Concomitant]
     Active Substance: FOLIC ACID
     Dosage: UNK
     Route: 065
  13. ATORVASTATIN [Concomitant]
     Active Substance: ATORVASTATIN
     Dosage: UNK
     Route: 065
  14. IRBESARTAN. [Concomitant]
     Active Substance: IRBESARTAN
     Dosage: UNK
     Route: 065
  15. PARACETAMOL [Concomitant]
     Active Substance: ACETAMINOPHEN
     Dosage: UNK
     Route: 065
  16. RANITIDINE. [Concomitant]
     Active Substance: RANITIDINE
     Dosage: UNK
     Route: 065
  17. METFORMIN [Concomitant]
     Active Substance: METFORMIN HYDROCHLORIDE
     Dosage: UNK
     Route: 065
  18. ZARZIO [Concomitant]
     Active Substance: FILGRASTIM
     Dosage: UNK
     Route: 065

REACTIONS (2)
  - Neutropenic sepsis [Recovered/Resolved with Sequelae]
  - Death [Fatal]

NARRATIVE: CASE EVENT DATE: 20160504
